FAERS Safety Report 11802531 (Version 1)
Quarter: 2015Q4

REPORT INFORMATION
  Report Type: Report from Study
  Country: US (occurrence: US)
  Receive Date: 20151204
  Receipt Date: 20151204
  Transmission Date: 20160305
  Serious: Yes (Hospitalization)
  Sender: FDA-Public Use
  Company Number: US-009507513-1512USA000448

PATIENT
  Age: 65 Year
  Sex: Male

DRUGS (11)
  1. KEPPRA [Concomitant]
     Active Substance: LEVETIRACETAM
     Dosage: UNK
     Dates: start: 200601, end: 200909
  2. ZOFRAN [Concomitant]
     Active Substance: ONDANSETRON HYDROCHLORIDE
     Dosage: UNK
     Dates: start: 200908
  3. ATORVASTATIN [Concomitant]
     Active Substance: ATORVASTATIN
     Dosage: UNK
     Dates: start: 200601, end: 200909
  4. DITROPAN [Concomitant]
     Active Substance: OXYBUTYNIN CHLORIDE
  5. HEXADROL [Concomitant]
     Active Substance: DEXAMETHASONE
     Dosage: UNK
     Dates: start: 200908
  6. ZOFRAN [Concomitant]
     Active Substance: ONDANSETRON HYDROCHLORIDE
     Dosage: UNK
     Dates: start: 200909
  7. HEXADROL [Concomitant]
     Active Substance: DEXAMETHASONE
     Dosage: UNK
     Dates: start: 200909
  8. HEXADROL [Concomitant]
     Active Substance: DEXAMETHASONE
     Dosage: UNK
     Dates: start: 200907
  9. FAMOTIDINE. [Concomitant]
     Active Substance: FAMOTIDINE
     Dosage: UNK
     Dates: start: 200601, end: 200909
  10. TEMOZOLOMIDE. [Suspect]
     Active Substance: TEMOZOLOMIDE
     Indication: GLIOBLASTOMA MULTIFORME
     Dosage: UNK
     Route: 048
     Dates: start: 200908
  11. TEMOZOLOMIDE. [Suspect]
     Active Substance: TEMOZOLOMIDE
     Dosage: UNK
     Dates: start: 200909

REACTIONS (3)
  - Jaundice [Unknown]
  - Hepatic necrosis [Unknown]
  - Acute kidney injury [Unknown]

NARRATIVE: CASE EVENT DATE: 2009
